FAERS Safety Report 20111708 (Version 1)
Quarter: 2021Q4

REPORT INFORMATION
  Report Type: Spontaneous
  Country: US (occurrence: US)
  Receive Date: 20211125
  Receipt Date: 20211125
  Transmission Date: 20220304
  Serious: No
  Sender: FDA-Public Use
  Company Number: MIQ-10012021-88

PATIENT

DRUGS (1)
  1. IVERMECTIN [Suspect]
     Active Substance: IVERMECTIN
     Indication: Colitis ulcerative
     Dosage: 3 MG, UNK
     Route: 065

REACTIONS (1)
  - Therapeutic product effective for unapproved indication [Unknown]
